FAERS Safety Report 24156700 (Version 1)
Quarter: 2024Q3

REPORT INFORMATION
  Report Type: Report from Study
  Country: BR (occurrence: BR)
  Receive Date: 20240731
  Receipt Date: 20240731
  Transmission Date: 20241017
  Serious: Yes (Hospitalization)
  Sender: AKCEA THERAPEUTICS
  Company Number: BR-AKCEA THERAPEUTICS, INC.-2024IS006105

PATIENT

DRUGS (1)
  1. TEGSEDI [Suspect]
     Active Substance: INOTERSEN SODIUM
     Indication: Hereditary neuropathic amyloidosis
     Dosage: UNK
     Route: 065
     Dates: end: 202405

REACTIONS (5)
  - Toe amputation [Not Recovered/Not Resolved]
  - Aphasia [Unknown]
  - Feeding disorder [Unknown]
  - Asthenia [Unknown]
  - Condition aggravated [Unknown]
